FAERS Safety Report 6035460-6 (Version None)
Quarter: 2009Q1

REPORT INFORMATION
  Report Type: 
  Country: None (occurrence: None)
  Receive Date: 20090112
  Receipt Date: 20090112
  Transmission Date: 20090719
  Serious: Yes (Other)
  Sender: FDA-Public Use
  Company Number: None

PATIENT
  Age: 74 Year
  Sex: Female
  Weight: 86.637 kg

DRUGS (8)
  1. BUPROPION HCL [Suspect]
     Indication: DEPRESSION
     Dosage: 75MG - ONE DAILY PO
     Route: 048
     Dates: start: 20081114, end: 20081211
  2. HYZAAR [Concomitant]
  3. LEXAPRO [Concomitant]
  4. LIPITOR [Concomitant]
  5. LEVOXYL [Concomitant]
  6. AEROBID [Concomitant]
  7. ASPIRIN [Concomitant]
  8. NEXIUM [Concomitant]

REACTIONS (5)
  - AGGRESSION [None]
  - ANGER [None]
  - INSOMNIA [None]
  - PRODUCT QUALITY ISSUE [None]
  - SUICIDAL IDEATION [None]
